FAERS Safety Report 5688092-3 (Version None)
Quarter: 2008Q1

REPORT INFORMATION
  Report Type: 
  Country: None (occurrence: None)
  Receive Date: 20080327
  Receipt Date: 20080313
  Transmission Date: 20080703
  Serious: Yes (Other)
  Sender: FDA-Public Use
  Company Number: B0511581A

PATIENT
  Age: 25 Year
  Sex: Female

DRUGS (3)
  1. MELPHALAN (FORMULATION UNKNOWN)  (GENERIC) (MELPHALAN) [Suspect]
     Indication: HODGKIN'S DISEASE
     Dosage: 140 MG/M2 / PER DAY / INTRAVENOUS
     Route: 042
     Dates: start: 20061101
  2. RANIMUSTINE (FORMULATION UNKNOWN) (RANIMUSTINE) [Suspect]
     Indication: HODGKIN'S DISEASE
     Dosage: 250 MG/M2 / PER DAY / INTRAVENOUS
     Route: 042
  3. ETOPOSIDE [Suspect]
     Indication: HODGKIN'S DISEASE
     Dosage: 400 MG/M2 / PER DAY / INTRAVENOUS INFUS
     Route: 042

REACTIONS (4)
  - CARDIAC FAILURE [None]
  - HYPERAESTHESIA [None]
  - RENAL IMPAIRMENT [None]
  - THROMBOTIC MICROANGIOPATHY [None]
